FAERS Safety Report 8852473 (Version 3)
Quarter: 2012Q4

REPORT INFORMATION
  Report Type: 
  Country: US (occurrence: US)
  Receive Date: 20121022
  Receipt Date: 20121121
  Transmission Date: 20130627
  Serious: Yes (Hospitalization, Other)
  Sender: FDA-Public Use
  Company Number: US-AMGEN-USASP2012066845

PATIENT
  Age: 80 Year
  Sex: Male
  Weight: 130.61 kg

DRUGS (9)
  1. ENBREL [Suspect]
     Indication: PSORIASIS
     Dosage: 50 mg, qwk
     Route: 058
     Dates: start: 200904, end: 201210
  2. SPIRONOLACTONE [Concomitant]
     Dosage: UNK
     Route: 048
  3. SYNTHROID [Concomitant]
     Dosage: UNK
     Route: 048
  4. NADOLOL [Concomitant]
     Dosage: UNK
     Route: 048
  5. LASIX                              /00032601/ [Concomitant]
     Dosage: UNK
     Route: 048
  6. TRICOR                             /00090101/ [Concomitant]
     Dosage: UNK
     Route: 048
  7. METFORMIN [Concomitant]
     Dosage: UNK
     Route: 048
  8. NICARDIPINE [Concomitant]
     Dosage: UNK
  9. OMEPRAZOLE [Concomitant]
     Dosage: UNK

REACTIONS (1)
  - Colorectal cancer [Unknown]
